FAERS Safety Report 25082062 (Version 1)
Quarter: 2025Q1

REPORT INFORMATION
  Report Type: Spontaneous
  Country: US (occurrence: US)
  Receive Date: 20250317
  Receipt Date: 20250317
  Transmission Date: 20250409
  Serious: No
  Sender: SANDOZ
  Company Number: US-SANDOZ-SDZ2025US015464

PATIENT
  Sex: Female

DRUGS (1)
  1. ESTRADIOL [Suspect]
     Active Substance: ESTRADIOL
     Indication: Product used for unknown indication
     Dosage: 0.037 MG, QD, 37.5 MCG / 1 10
     Route: 062

REACTIONS (4)
  - Rash macular [Unknown]
  - Livedo reticularis [Unknown]
  - Application site erythema [Unknown]
  - Application site pruritus [Unknown]
